FAERS Safety Report 6273256-0 (Version None)
Quarter: 2009Q3

REPORT INFORMATION
  Report Type: 
  Country: None (occurrence: None)
  Receive Date: 20090720
  Receipt Date: 20090710
  Transmission Date: 20100115
  Serious: Yes (Other)
  Sender: FDA-Public Use
  Company Number: US-AMGEN-QUU355254

PATIENT
  Sex: Female

DRUGS (2)
  1. ENBREL [Suspect]
     Indication: PSORIATIC ARTHROPATHY
     Route: 058
  2. ENBREL [Suspect]
     Indication: PSORIASIS

REACTIONS (9)
  - OEDEMA PERIPHERAL [None]
  - ORAL PRURITUS [None]
  - OROPHARYNGEAL PAIN [None]
  - RASH [None]
  - RASH GENERALISED [None]
  - SWOLLEN TONGUE [None]
  - THROAT IRRITATION [None]
  - TOOTH REPAIR [None]
  - TOOTHACHE [None]
